FAERS Safety Report 9169317 (Version 3)
Quarter: 2013Q4

REPORT INFORMATION
  Report Type: Spontaneous
  Country: US (occurrence: US)
  Receive Date: 20130318
  Receipt Date: 20131003
  Transmission Date: 20140711
  Serious: Yes (Hospitalization)
  Sender: FDA-Public Use
  Company Number: US-B.I. PHARMACEUTICALS,INC./RIDGEFIELD-2013-BI-06710BP

PATIENT
  Age: 80 Year
  Sex: Female
  Weight: 63.5 kg

DRUGS (13)
  1. PRADAXA [Suspect]
     Indication: ANTICOAGULANT THERAPY
     Dosage: 300 MG
     Dates: start: 20110419, end: 20110527
  2. PRADAXA [Suspect]
     Indication: ATRIAL FIBRILLATION
  3. ALEVE [Suspect]
     Dates: end: 20110527
  4. FOSAMAX [Concomitant]
     Dosage: 70 MG
     Dates: start: 2008
  5. HYDRALAZINE [Concomitant]
     Dosage: 200 MG
     Dates: start: 2008
  6. HYZAAR [Concomitant]
     Dates: start: 2008
  7. DIGOXIN [Concomitant]
  8. LOSARTAN [Concomitant]
  9. OMEPRAZOLE [Concomitant]
  10. HYDROCODONE [Concomitant]
  11. PRAVASTATIN [Concomitant]
     Dosage: 10 MG
  12. LOPRESSOR [Concomitant]
     Dosage: 100 MG
  13. CLONIDINE [Concomitant]
     Dosage: 0.2 MG

REACTIONS (2)
  - Lower gastrointestinal haemorrhage [Recovered/Resolved]
  - Haemorrhagic anaemia [Unknown]
